FAERS Safety Report 7690231-X (Version None)
Quarter: 2011Q3

REPORT INFORMATION
  Report Type: 
  Country: None (occurrence: None)
  Receive Date: 20110818
  Receipt Date: 20110816
  Transmission Date: 20111222
  Serious: Yes (Other)
  Sender: FDA-Public Use
  Company Number: US-PFIZER INC-2011189333

PATIENT
  Sex: Male

DRUGS (2)
  1. CHANTIX [Suspect]
     Dosage: UNK
     Route: 048
  2. CHANTIX [Suspect]
     Dosage: UNK
     Dates: start: 20110101

REACTIONS (5)
  - INSOMNIA [None]
  - MOOD ALTERED [None]
  - SLEEP DISORDER [None]
  - MOOD SWINGS [None]
  - DEPRESSION [None]
